FAERS Safety Report 21082970 (Version 7)
Quarter: 2022Q4

REPORT INFORMATION
  Report Type: Report from Study
  Country: US (occurrence: US)
  Receive Date: 20220714
  Receipt Date: 20221217
  Transmission Date: 20230112
  Serious: Yes (Hospitalization, Other)
  Sender: FDA-Public Use
  Company Number: US-NOVARTISTESTPH-NVSC2022US159222

PATIENT
  Sex: Male

DRUGS (1)
  1. ENTRESTO [Suspect]
     Active Substance: SACUBITRIL\VALSARTAN
     Indication: Product used for unknown indication
     Dosage: 1 DOSAGE FORM, BID (24/26 MG)
     Route: 048

REACTIONS (8)
  - Thrombosis [Not Recovered/Not Resolved]
  - Thrombosis [Recovered/Resolved]
  - Blood potassium abnormal [Unknown]
  - Mobility decreased [Unknown]
  - Wound infection [Unknown]
  - Throat clearing [Unknown]
  - Cough [Unknown]
  - Hypotension [Unknown]
